FAERS Safety Report 5504750-5 (Version None)
Quarter: 2007Q4

REPORT INFORMATION
  Report Type: 
  Country: None (occurrence: None)
  Receive Date: 20071102
  Receipt Date: 20071024
  Transmission Date: 20080405
  Serious: Yes (Hospitalization, Other)
  Sender: FDA-Public Use
  Company Number: JP-ASTRAZENECA-2007AP06551

PATIENT
  Age: 28889 Day
  Sex: Female
  Weight: 43 kg

DRUGS (9)
  1. IRESSA [Suspect]
     Indication: LUNG NEOPLASM MALIGNANT
     Route: 048
     Dates: start: 20070803, end: 20070913
  2. BENAMBAX [Suspect]
     Indication: PNEUMOCYSTIS JIROVECI PNEUMONIA
     Route: 041
     Dates: start: 20071011, end: 20071016
  3. RINDERON [Concomitant]
     Indication: BRAIN CANCER METASTATIC
     Dosage: DIVIDED DOSES:1-3 TIMES
     Route: 048
     Dates: start: 20070718, end: 20071019
  4. LASIX [Concomitant]
     Indication: PERICARDIAL EFFUSION
     Route: 048
     Dates: start: 20070730, end: 20071017
  5. ALDACTONE [Concomitant]
     Indication: PERICARDIAL EFFUSION
     Route: 048
     Dates: start: 20070730, end: 20071018
  6. FAMOTIDINE [Concomitant]
     Indication: GASTRITIS
     Route: 048
     Dates: start: 20070730, end: 20071019
  7. SELENICA-R [Concomitant]
     Indication: EPILEPSY
     Route: 048
     Dates: start: 20070730, end: 20071022
  8. CARBOPLATIN [Concomitant]
     Dates: start: 20060201
  9. PACLITAXEL [Concomitant]
     Dates: start: 20060201

REACTIONS (2)
  - LIVER DISORDER [None]
  - THROMBOCYTOPENIA [None]
